FAERS Safety Report 21865804 (Version 1)
Quarter: 2023Q1

REPORT INFORMATION
  Report Type: Spontaneous
  Country: US (occurrence: US)
  Receive Date: 20230116
  Receipt Date: 20230116
  Transmission Date: 20230417
  Serious: No
  Sender: FDA-Public Use
  Company Number: US-SANOFI-01442606

PATIENT
  Sex: Male

DRUGS (3)
  1. ALLEGRA ALLERGY [Suspect]
     Active Substance: FEXOFENADINE HYDROCHLORIDE
     Dosage: UNK
  2. MAGNESIUM [Suspect]
     Active Substance: MAGNESIUM
     Dosage: UNK
  3. VITAMIN C [Suspect]
     Active Substance: ASCORBIC ACID
     Dosage: UNK

REACTIONS (2)
  - Illness [Unknown]
  - Drug interaction [Unknown]
